FAERS Safety Report 4382712-1 (Version None)
Quarter: 2004Q2

REPORT INFORMATION
  Report Type: 
  Country: None (occurrence: None)
  Receive Date: 20040616
  Receipt Date: 20040611
  Transmission Date: 20050107
  Serious: Yes (Other)
  Sender: FDA-Public Use
  Company Number: 002#4#2004-00046

PATIENT
  Age: 55 Year
  Sex: Female
  Weight: 87.9978 kg

DRUGS (15)
  1. REGLAN [Suspect]
     Indication: GASTROOESOPHAGEAL REFLUX DISEASE
     Dosage: 10MG, 1IN 1 D, ORAL
     Route: 048
     Dates: start: 20040120, end: 20040123
  2. BUPROPION HCL [Suspect]
     Indication: ILL-DEFINED DISORDER
     Dosage: 300MG, 1 IN 1 D, ORAL
     Route: 048
  3. VALSARTAN-HCT [Concomitant]
  4. AMLODIPINE [Concomitant]
  5. SIMVASTATIN [Concomitant]
  6. DIFLUNISAL [Concomitant]
  7. DOXEPIN HCL [Concomitant]
  8. LEVOTHYROXINE SODIUM [Concomitant]
  9. OMEPRAZOLE [Concomitant]
  10. VENLAFAXINE [Concomitant]
  11. FLUOXETINE [Concomitant]
  12. HYDROCHLOROQUINE [Concomitant]
  13. FOLIC ACID [Concomitant]
  14. VITAMIN B-12 [Concomitant]
  15. VITAMIN B6 [Concomitant]

REACTIONS (1)
  - GRAND MAL CONVULSION [None]
